FAERS Safety Report 24120508 (Version 2)
Quarter: 2024Q3

REPORT INFORMATION
  Report Type: Spontaneous
  Country: FR (occurrence: FR)
  Receive Date: 20240722
  Receipt Date: 20240812
  Transmission Date: 20241017
  Serious: Yes (Hospitalization, Other)
  Sender: OTSUKA
  Company Number: FR-OTSUKA-2024_020218

PATIENT
  Age: 29 Year
  Sex: Male

DRUGS (2)
  1. ABILIFY [Suspect]
     Active Substance: ARIPIPRAZOLE
     Indication: Bipolar disorder
     Dosage: UNKNOWN
     Route: 065
     Dates: end: 202312
  2. ABILIFY [Suspect]
     Active Substance: ARIPIPRAZOLE
     Dosage: 30 MG
     Route: 065
     Dates: start: 202406

REACTIONS (3)
  - Bipolar disorder [Recovering/Resolving]
  - Therapy interrupted [Unknown]
  - Product use in unapproved indication [Unknown]
